FAERS Safety Report 13542827 (Version 1)
Quarter: 2017Q2

REPORT INFORMATION
  Report Type: Spontaneous
  Country: US (occurrence: US)
  Receive Date: 20170512
  Receipt Date: 20170512
  Transmission Date: 20170830
  Serious: Yes (Hospitalization)
  Sender: FDA-Public Use
  Company Number: US-TEVA-767021USA

PATIENT
  Sex: Male
  Weight: 31.78 kg

DRUGS (2)
  1. FENTORA [Suspect]
     Active Substance: FENTANYL CITRATE
     Indication: BREAKTHROUGH PAIN
     Route: 065
  2. KADIAN [Concomitant]
     Active Substance: MORPHINE SULFATE

REACTIONS (1)
  - Foot operation [Unknown]
